FAERS Safety Report 21609184 (Version 8)
Quarter: 2025Q4

REPORT INFORMATION
  Report Type: Spontaneous
  Country: IN (occurrence: IN)
  Receive Date: 20221117
  Receipt Date: 20251001
  Transmission Date: 20260117
  Serious: Yes (Other)
  Sender: PFIZER
  Company Number: IN-PFIZER INC-2019357635

PATIENT
  Age: 66 Year
  Sex: Female

DRUGS (13)
  1. PALBOCICLIB [Suspect]
     Active Substance: PALBOCICLIB
     Indication: Breast cancer metastatic
     Dosage: 125 MG, CYCLIC (ONCE A DAY X 21 DAY ON + 7DAY OFF) FOR 2 MONTHS
     Route: 048
     Dates: start: 20180621
  2. PALBOCICLIB [Suspect]
     Active Substance: PALBOCICLIB
     Dosage: 125 MG, 1X/DAY
     Route: 048
     Dates: start: 20210615
  3. PALBOCICLIB [Suspect]
     Active Substance: PALBOCICLIB
     Indication: Breast cancer metastatic
     Dosage: 125 MG (ONCE A DAY X 21 DAY ON + 7DAY OFF)
     Route: 048
     Dates: end: 2024
  4. LETROZOLE [Concomitant]
     Active Substance: LETROZOLE
     Dosage: 2.5 MG, 1X/DAY (2 MONTHS)
  5. LETROZOLE [Concomitant]
     Active Substance: LETROZOLE
     Dosage: 2.5 MG, 1X/DAY (3 MONTHS)
  6. CHOLECALCIFEROL [Concomitant]
     Active Substance: CHOLECALCIFEROL
     Dosage: 60000 1 TAB/ FOR 2MONTHS
  7. IDROFOS [Concomitant]
     Dosage: 50G TAB /1 TAB/ FOR 2MONTHS
  8. IDROFOS [Concomitant]
     Dosage: 50 MG TAB /1 TAB/ FOR 3MONTHS
  9. CCM [Concomitant]
     Dosage: UNK, 0-1-0 X 28 DAYS (FOR 2 MONTHS)
  10. CCM [Concomitant]
     Dosage: UNK, 0-1-0 (FOR 3 MONTHS)
  11. LETROZOLE [Concomitant]
     Active Substance: LETROZOLE
     Dosage: 2.5 MG, DAILY
     Dates: start: 2018
  12. LETROZOLE [Concomitant]
     Active Substance: LETROZOLE
     Dosage: 2.5 MG, 1X/DAY(X3MONTHS)
  13. OSTEOPHOS [Concomitant]
     Dosage: 35 MG(1TAB/WEEK/EMPTY/X3)

REACTIONS (9)
  - Blood pressure increased [Recovering/Resolving]
  - Carcinoembryonic antigen increased [Unknown]
  - Neutrophil count decreased [Unknown]
  - Haemoglobin decreased [Unknown]
  - COVID-19 [Unknown]
  - Pain [Recovering/Resolving]
  - Respiratory rate increased [Unknown]
  - Oxygen saturation decreased [Recovering/Resolving]
  - Heart rate increased [Recovering/Resolving]

NARRATIVE: CASE EVENT DATE: 20230922
